FAERS Safety Report 8376137-1 (Version None)
Quarter: 2012Q2

REPORT INFORMATION
  Report Type: 
  Country: None (occurrence: None)
  Receive Date: 20120522
  Receipt Date: 20120517
  Transmission Date: 20120825
  Serious: Yes (Other)
  Sender: FDA-Public Use
  Company Number: PHHY2012CL042860

PATIENT
  Age: 72 Year
  Sex: Female

DRUGS (2)
  1. ESOMEPRAZOLE MAGNESIUM [Concomitant]
     Dosage: UNK UKN, UNK
  2. EXFORGE [Suspect]
     Indication: HYPERTENSION
     Dosage: UNK UKN, UNK

REACTIONS (1)
  - BRONCHIECTASIS [None]
